FAERS Safety Report 17327126 (Version 1)
Quarter: 2020Q1

REPORT INFORMATION
  Report Type: Spontaneous
  Country: US (occurrence: US)
  Receive Date: 20200127
  Receipt Date: 20200127
  Transmission Date: 20200409
  Serious: No
  Sender: FDA-Public Use
  Company Number: US-BRACCO-2019US05277

PATIENT
  Sex: Male

DRUGS (1)
  1. LIQUID E-Z-PAQUE [Suspect]
     Active Substance: BARIUM SULFATE
     Indication: X-RAY WITH CONTRAST UPPER GASTROINTESTINAL TRACT
     Dosage: UNK, SINGLE
     Route: 048
     Dates: start: 20191017, end: 20191017

REACTIONS (2)
  - No adverse event [Unknown]
  - Expired product administered [Unknown]

NARRATIVE: CASE EVENT DATE: 20191017
